FAERS Safety Report 8875917 (Version 1)
Quarter: 2012Q4

REPORT INFORMATION
  Report Type: Report from Study
  Country: US (occurrence: US)
  Receive Date: 20121023
  Receipt Date: 20121023
  Transmission Date: 20130627
  Serious: Yes (Hospitalization)
  Sender: FDA-Public Use
  Company Number: US-GLAXOSMITHKLINE-A0998034A

PATIENT
  Age: 76 Year
  Sex: Male
  Weight: 115 kg

DRUGS (9)
  1. PAZOPANIB [Suspect]
     Indication: NEOPLASM
     Dosage: 800MG Cyclic
     Route: 048
     Dates: start: 20120914
  2. EVEROLIMUS [Suspect]
     Indication: NEOPLASM
     Dosage: 10MG Cyclic
     Route: 048
     Dates: start: 20120914
  3. ASPIRIN [Concomitant]
     Dosage: 81MG Per day
     Route: 048
  4. ALTEPLASE [Concomitant]
     Dosage: 2MG Twice per day
     Route: 042
  5. HUMAN ALBUMIN [Concomitant]
     Dosage: 12.5G Twice per day
     Route: 042
  6. SODIUM CHLORIDE [Concomitant]
     Route: 042
  7. ACETAMINOPHEN + HYDROCODONE [Concomitant]
     Dosage: 1TAB As required
     Route: 048
  8. PROCHLORPERAZINE [Concomitant]
     Dosage: 10MG As required
     Route: 048
  9. WARFARIN [Concomitant]
     Indication: ATRIAL FIBRILLATION

REACTIONS (1)
  - Renal failure acute [Unknown]
